FAERS Safety Report 8966675 (Version 4)
Quarter: 2021Q3

REPORT INFORMATION
  Report Type: Spontaneous
  Country: JP (occurrence: JP)
  Receive Date: 20121217
  Receipt Date: 20210910
  Transmission Date: 20211014
  Serious: Yes (Death, Other)
  Sender: FDA-Public Use
  Company Number: JP-CELGENEUS-087-21880-12120479

PATIENT
  Age: 39 Year
  Sex: Male

DRUGS (7)
  1. DEXAMETHASONE. [Concomitant]
     Active Substance: DEXAMETHASONE
     Indication: LYMPHADENOPATHY
     Route: 048
  2. CYCLOPHOSPHAMIDE. [Concomitant]
     Active Substance: CYCLOPHOSPHAMIDE
     Indication: LYMPHADENOPATHY
     Route: 065
  3. REVLIMID [Suspect]
     Active Substance: LENALIDOMIDE
     Indication: LYMPHOPLASMACYTOID LYMPHOMA/IMMUNOCYTOMA
  4. THALIDOMIDE [Suspect]
     Active Substance: THALIDOMIDE
     Indication: POEMS SYNDROME
     Route: 048
  5. REVLIMID [Suspect]
     Active Substance: LENALIDOMIDE
     Indication: POEMS SYNDROME
     Dosage: 15 MILLIGRAM
     Route: 048
     Dates: start: 201106
  6. THALIDOMIDE [Suspect]
     Active Substance: THALIDOMIDE
     Indication: LYMPHOPLASMACYTOID LYMPHOMA/IMMUNOCYTOMA
  7. RITUXIMAB. [Concomitant]
     Active Substance: RITUXIMAB
     Indication: LYMPHADENOPATHY
     Route: 065

REACTIONS (7)
  - Death [Fatal]
  - Diffuse large B-cell lymphoma [Unknown]
  - Delirium [Unknown]
  - Sepsis [Unknown]
  - Pyrexia [Unknown]
  - Pleural effusion [Unknown]
  - Pancytopenia [Unknown]

NARRATIVE: CASE EVENT DATE: 201202
